FAERS Safety Report 4787372-3 (Version None)
Quarter: 2005Q4

REPORT INFORMATION
  Report Type: 
  Country: None (occurrence: None)
  Receive Date: 20051004
  Receipt Date: 20050923
  Transmission Date: 20060501
  Serious: Yes (Hospitalization, Other)
  Sender: FDA-Public Use
  Company Number: US-BRISTOL-MYERS SQUIBB COMPANY-13120589

PATIENT
  Age: 60 Year
  Sex: Female
  Weight: 98 kg

DRUGS (8)
  1. IXABEPILONE [Suspect]
     Indication: BREAST CANCER METASTATIC
     Dosage: INITIAL TX DATE: 17-AUG-05. ADM ON DAYS 1,8 + 15. TOTAL DOSE ADM THIS COURSE: 92.25 MG.
     Route: 042
     Dates: start: 20050831, end: 20050831
  2. CARBOPLATIN [Suspect]
     Indication: BREAST CANCER METASTATIC
     Dosage: ACTUAL DOSE: AUC 2. ADM ON DAYS 1, 8 + 15. TOTAL DOSE ADM THIS COURSE: 969 MG.
     Route: 042
     Dates: start: 20050817
  3. TRASTUZUMAB [Suspect]
     Indication: BREAST CANCER METASTATIC
     Dosage: 4MG/KG ON D1, WK 1 ONLY/THEN 2MG/KG ON DAYS 1, 8, 15 + 22 STARTING ON WK 2/TOTAL DOSE ADM: 810.4MG
     Route: 042
     Dates: start: 20050817
  4. ACIPHEX [Concomitant]
  5. ATIVAN [Concomitant]
  6. DECADRON [Concomitant]
  7. PHENERGAN [Concomitant]
  8. ANZEMET [Concomitant]

REACTIONS (3)
  - DEHYDRATION [None]
  - DIARRHOEA [None]
  - NAUSEA [None]
